FAERS Safety Report 13909697 (Version 3)
Quarter: 2018Q1

REPORT INFORMATION
  Report Type: Spontaneous
  Country: US (occurrence: US)
  Receive Date: 20170828
  Receipt Date: 20180223
  Transmission Date: 20180508
  Serious: Yes (Hospitalization, Other)
  Sender: FDA-Public Use
  Company Number: US-BRISTOL-MYERS SQUIBB COMPANY-BMS-2017-076234

PATIENT
  Sex: Female
  Weight: 70.3 kg

DRUGS (2)
  1. KENALOG-40 [Suspect]
     Active Substance: TRIAMCINOLONE ACETONIDE
     Indication: MUSCLE TIGHTNESS
     Dosage: UNK UNK, QD
     Route: 065
     Dates: start: 20161221
  2. AMRIX [Concomitant]
     Active Substance: CYCLOBENZAPRINE HYDROCHLORIDE
     Indication: PRODUCT USED FOR UNKNOWN INDICATION
     Route: 065

REACTIONS (21)
  - Alopecia [Unknown]
  - Cardiovascular disorder [Unknown]
  - Hormone level abnormal [Unknown]
  - Product use in unapproved indication [Unknown]
  - Weight decreased [Unknown]
  - Ovarian cyst [Unknown]
  - Peripheral swelling [Unknown]
  - Acne [Unknown]
  - Diarrhoea [Unknown]
  - Oligomenorrhoea [Unknown]
  - Intervertebral disc protrusion [Unknown]
  - Hair growth abnormal [Unknown]
  - Hunger [Unknown]
  - Dysmenorrhoea [Unknown]
  - Suicidal ideation [Unknown]
  - Throat tightness [Unknown]
  - Panic attack [Unknown]
  - Joint swelling [Unknown]
  - Gastrointestinal disorder [Unknown]
  - Lymph gland infection [Unknown]
  - Pain in extremity [Unknown]

NARRATIVE: CASE EVENT DATE: 2017
